FAERS Safety Report 16024359 (Version 2)
Quarter: 2019Q1

REPORT INFORMATION
  Report Type: Spontaneous
  Country: AU (occurrence: AU)
  Receive Date: 20190301
  Receipt Date: 20190307
  Transmission Date: 20190418
  Serious: Yes (Death, Hospitalization, Other)
  Sender: FDA-Public Use
  Company Number: AU-SA-2019SA055212

PATIENT
  Age: 52 Year
  Sex: Male

DRUGS (1)
  1. FABRAZYME [Suspect]
     Active Substance: AGALSIDASE BETA
     Indication: FABRY^S DISEASE
     Dosage: 20 MG, QOW
     Route: 041
     Dates: start: 20100520, end: 20190129

REACTIONS (4)
  - Hypersensitivity [Unknown]
  - Wound sepsis [Fatal]
  - Leg amputation [Unknown]
  - Shoulder operation [Unknown]

NARRATIVE: CASE EVENT DATE: 201810
